FAERS Safety Report 4304246-2 (Version None)
Quarter: 2004Q1

REPORT INFORMATION
  Report Type: 
  Country: None (occurrence: None)
  Receive Date: 20040225
  Receipt Date: 20040219
  Transmission Date: 20041129
  Serious: Yes (Life-Threatening)
  Sender: FDA-Public Use
  Company Number: WAES 0402NZL00021

PATIENT
  Age: 73 Year
  Sex: Female

DRUGS (5)
  1. FOSAMAX [Concomitant]
     Indication: OSTEOPOROSIS
     Route: 048
  2. CLOPIDOGREL BISULFATE [Concomitant]
     Route: 048
  3. DILTIAZEM HYDROCHLORIDE [Suspect]
     Route: 048
  4. OMEPRAZOLE [Concomitant]
     Route: 048
  5. ZOCOR [Suspect]
     Indication: HYPERCHOLESTEROLAEMIA
     Route: 048
     Dates: start: 20020801, end: 20020828

REACTIONS (2)
  - DRUG INTERACTION [None]
  - RHABDOMYOLYSIS [None]
